FAERS Safety Report 26075037 (Version 1)
Quarter: 2025Q4

REPORT INFORMATION
  Report Type: Spontaneous
  Country: US (occurrence: US)
  Receive Date: 20251121
  Receipt Date: 20251121
  Transmission Date: 20260118
  Serious: Yes (Other)
  Sender: NOVO NORDISK
  Company Number: US-NOVOPROD-1564836

PATIENT
  Sex: Female

DRUGS (1)
  1. INSULIN ASPART [Suspect]
     Active Substance: INSULIN ASPART
     Indication: Diabetes mellitus
     Dosage: 5 IU, TID (15 MINUTES BEFORE EACH MEAL)
     Route: 058
     Dates: start: 202509

REACTIONS (2)
  - Eye haemorrhage [Unknown]
  - Mydriasis [Unknown]
